FAERS Safety Report 15363151 (Version 1)
Quarter: 2018Q3

REPORT INFORMATION
  Report Type: Spontaneous
  Country: FR (occurrence: FR)
  Receive Date: 20180907
  Receipt Date: 20180907
  Transmission Date: 20181010
  Serious: Yes (Death)
  Sender: FDA-Public Use
  Company Number: FR-PFIZER INC-2018357100

PATIENT
  Sex: Male

DRUGS (1)
  1. XALKORI [Suspect]
     Active Substance: CRIZOTINIB

REACTIONS (1)
  - Death [Fatal]
